FAERS Safety Report 14175565 (Version 4)
Quarter: 2017Q4

REPORT INFORMATION
  Report Type: Spontaneous
  Country: IT (occurrence: IT)
  Receive Date: 20171109
  Receipt Date: 20171221
  Transmission Date: 20180321
  Serious: Yes (Hospitalization)
  Sender: FDA-Public Use
  Company Number: IT-BAYER-2017-210672

PATIENT
  Age: 22 Year
  Sex: Female

DRUGS (5)
  1. ALPRAZOLAM. [Suspect]
     Active Substance: ALPRAZOLAM
     Indication: INTENTIONAL OVERDOSE
     Dosage: 7.5 MG, UNK
     Route: 048
     Dates: start: 20170924, end: 20170924
  2. ALPRAZOLAM. [Suspect]
     Active Substance: ALPRAZOLAM
     Indication: INTENTIONAL OVERDOSE
     Dosage: 7.5 MG, ONCE
     Route: 048
     Dates: start: 20170924, end: 20170924
  3. CIPROXIN 500 MG [Suspect]
     Active Substance: CIPROFLOXACIN
     Indication: INTENTIONAL OVERDOSE
     Dosage: 2000 MG, ONCE
     Route: 048
     Dates: start: 20170924, end: 20170924
  4. ASPIRINA 400 MG COMPRESSE EFFERVESCENTI CON VITAMINA C [Suspect]
     Active Substance: ACETAMINOPHEN\ASCORBIC ACID
     Indication: INTENTIONAL OVERDOSE
     Dosage: 1600 MG, ONCE
     Route: 048
     Dates: start: 20170924, end: 20170924
  5. ASPIRINA 400 MG COMPRESSE EFFERVESCENTI CON VITAMINA C [Suspect]
     Active Substance: ACETAMINOPHEN\ASCORBIC ACID
     Indication: INTENTIONAL OVERDOSE
     Dosage: 4 DF, UNK
     Route: 048
     Dates: start: 20170924, end: 20170924

REACTIONS (4)
  - Bradyphrenia [Recovered/Resolved]
  - Intentional overdose [Unknown]
  - Drug abuse [Unknown]
  - Hypokinesia [Recovered/Resolved]

NARRATIVE: CASE EVENT DATE: 20170924
